FAERS Safety Report 5343948-6 (Version None)
Quarter: 2007Q2

REPORT INFORMATION
  Report Type: 
  Country: None (occurrence: None)
  Receive Date: 20070604
  Receipt Date: 20070523
  Transmission Date: 20071010
  Serious: Yes (Other)
  Sender: FDA-Public Use
  Company Number: JP-ASTRAZENECA-2007AP02785

PATIENT
  Age: 58 Year
  Sex: Male
  Weight: 90 kg

DRUGS (23)
  1. MEROPENEM [Suspect]
     Indication: PNEUMONIA
     Route: 041
     Dates: start: 20070105, end: 20070108
  2. MEROPENEM [Suspect]
     Route: 041
     Dates: start: 20070109, end: 20070109
  3. LACTEC [Concomitant]
     Indication: FLUID REPLACEMENT
     Route: 041
     Dates: start: 20070101, end: 20070101
  4. LACTEC [Concomitant]
     Route: 041
     Dates: start: 20070102, end: 20070104
  5. LACTEC [Concomitant]
     Route: 041
     Dates: start: 20070105, end: 20070105
  6. GLYCEOL [Concomitant]
     Indication: INTRACRANIAL PRESSURE INCREASED
     Route: 041
     Dates: start: 20070101, end: 20070101
  7. GLYCEOL [Concomitant]
     Route: 041
     Dates: start: 20070102, end: 20070109
  8. SEVOFLURANE [Concomitant]
     Indication: GENERAL ANAESTHESIA
     Route: 055
     Dates: start: 20070101, end: 20070101
  9. RADICUT [Concomitant]
     Indication: CEREBELLAR INFARCTION
     Route: 041
     Dates: start: 20070102
  10. PANSPORIN INFUSION KIT [Concomitant]
     Indication: INFECTION PROPHYLAXIS
     Route: 041
     Dates: start: 20070102, end: 20070105
  11. HUMULIN R [Concomitant]
     Indication: DIABETES MELLITUS
     Dosage: AS APPROPRIATE
     Route: 058
     Dates: start: 20070102, end: 20070104
  12. HUMULIN R [Concomitant]
     Dosage: AS APPROPRIATE
     Route: 058
     Dates: start: 20070105, end: 20070109
  13. MALTOSE [Concomitant]
     Indication: FLUID REPLACEMENT
     Route: 041
     Dates: start: 20070105, end: 20070105
  14. MALTOSE [Concomitant]
     Route: 041
     Dates: start: 20070106, end: 20070108
  15. MALTOSE [Concomitant]
     Route: 041
     Dates: start: 20070109, end: 20070109
  16. ASPARA K [Concomitant]
     Indication: BLOOD POTASSIUM DECREASED
     Route: 041
     Dates: start: 20070105, end: 20070105
  17. ASPARA K [Concomitant]
     Route: 041
     Dates: start: 20070106, end: 20070108
  18. ASPARA K [Concomitant]
     Route: 041
     Dates: start: 20070109, end: 20070109
  19. MICARDIS [Concomitant]
     Indication: HYPERTENSION
     Route: 051
     Dates: start: 20070105
  20. VITAMEDIN [Concomitant]
     Indication: HYPOVITAMINOSIS
     Route: 041
     Dates: start: 20070106, end: 20070106
  21. FOY [Concomitant]
     Indication: DISSEMINATED INTRAVASCULAR COAGULATION
     Route: 041
     Dates: start: 20070106, end: 20070109
  22. LOXONIN [Concomitant]
     Indication: PYREXIA
     Route: 051
     Dates: start: 20070106, end: 20070115
  23. NEUART [Concomitant]
     Indication: DISSEMINATED INTRAVASCULAR COAGULATION
     Route: 041
     Dates: start: 20070106, end: 20070109

REACTIONS (1)
  - RHABDOMYOLYSIS [None]
